FAERS Safety Report 18665856 (Version 1)
Quarter: 2020Q4

REPORT INFORMATION
  Report Type: Spontaneous
  Country: JP (occurrence: JP)
  Receive Date: 20201226
  Receipt Date: 20201226
  Transmission Date: 20210114
  Serious: Yes (Hospitalization, Other)
  Sender: FDA-Public Use
  Company Number: JP-GLAXOSMITHKLINE-JP2020JPN252713

PATIENT
  Age: 83 Year
  Sex: Male

DRUGS (1)
  1. VALACICLOVIR HYDROCHLORIDE [Suspect]
     Active Substance: VALACYCLOVIR HYDROCHLORIDE
     Indication: FACIAL PARALYSIS
     Dosage: 3000 MG
     Route: 048

REACTIONS (7)
  - Dehydration [Unknown]
  - Toxic encephalopathy [Unknown]
  - Product use in unapproved indication [Unknown]
  - Nephropathy toxic [Recovering/Resolving]
  - Abnormal behaviour [Unknown]
  - Renal impairment [Recovering/Resolving]
  - Fluid intake reduced [Recovering/Resolving]
